FAERS Safety Report 11626713 (Version 1)
Quarter: 2015Q4

REPORT INFORMATION
  Report Type: Spontaneous
  Country: US (occurrence: US)
  Receive Date: 20151013
  Receipt Date: 20151013
  Transmission Date: 20160304
  Serious: Yes (Other)
  Sender: FDA-Public Use
  Company Number: US-PFIZER INC-2015337473

PATIENT
  Age: 59 Year
  Sex: Female
  Weight: 68 kg

DRUGS (1)
  1. ESTRING [Suspect]
     Active Substance: ESTRADIOL
     Indication: DYSPAREUNIA
     Dosage: 2 MG, EVERY 3 MONTHS
     Dates: start: 20151001, end: 20151006

REACTIONS (8)
  - Product physical issue [Unknown]
  - Vomiting [Recovered/Resolved]
  - Headache [Recovering/Resolving]
  - Drug ineffective [Unknown]
  - Vaginal laceration [Unknown]
  - Vulvovaginal pain [Not Recovered/Not Resolved]
  - Nausea [Recovered/Resolved]
  - Dysgeusia [Recovered/Resolved]

NARRATIVE: CASE EVENT DATE: 201510
